FAERS Safety Report 4714814-1 (Version None)
Quarter: 2005Q3

REPORT INFORMATION
  Report Type: 
  Country: None (occurrence: None)
  Receive Date: 20050714
  Receipt Date: 20050714
  Transmission Date: 20060218
  Serious: Yes (Other)
  Sender: FDA-Public Use
  Company Number: None

PATIENT
  Sex: Male
  Weight: 78.3 kg

DRUGS (3)
  1. METHOTREXATE [Suspect]
     Indication: ACUTE LYMPHOCYTIC LEUKAEMIA
     Dosage: DURING INTERIM MAINTENANCE I
     Route: 065
     Dates: start: 20050407, end: 20050519
  2. METHOTREXATE [Suspect]
     Indication: ACUTE LYMPHOCYTIC LEUKAEMIA
     Dosage: DURING INTERIM MAINTENANCE I
     Route: 065
     Dates: start: 20040811
  3. DEXAMETHASONE [Suspect]
     Dosage: DURING INDUCTION
     Dates: start: 20050407, end: 20050427

REACTIONS (5)
  - BONE MARROW DEPRESSION [None]
  - HAEMOCHROMATOSIS [None]
  - HAEMOSIDEROSIS [None]
  - SKIN EXFOLIATION [None]
  - VENOOCCLUSIVE LIVER DISEASE [None]
